FAERS Safety Report 15090123 (Version 1)
Quarter: 2018Q2

REPORT INFORMATION
  Report Type: Spontaneous
  Country: PT (occurrence: PT)
  Receive Date: 20180629
  Receipt Date: 20180629
  Transmission Date: 20180711
  Serious: Yes (Other)
  Sender: FDA-Public Use
  Company Number: PT-AUROBINDO-AUR-APL-2018-033203

PATIENT
  Age: 48 Year
  Sex: Female

DRUGS (2)
  1. CAPECITABINE FILM COATED TABLET [Suspect]
     Active Substance: CAPECITABINE
     Indication: BREAST CANCER
     Dosage: 1650 MILLIGRAM/SQ. METER, DAILY,DAY 1 TO DAY 14 2 CYCLES
     Route: 065
  2. CAPECITABINE FILM COATED TABLET [Suspect]
     Active Substance: CAPECITABINE
     Dosage: 2500 MILLIGRAM/SQ. METER, DAILY,DAY 1 TO DAY 14 6 CYCLES
     Route: 065

REACTIONS (1)
  - Neurotoxicity [Unknown]
